FAERS Safety Report 5660334-X (Version None)
Quarter: 2008Q1

REPORT INFORMATION
  Report Type: 
  Country: None (occurrence: None)
  Receive Date: 20080311
  Receipt Date: 20071004
  Transmission Date: 20080703
  Serious: No
  Sender: FDA-Public Use
  Company Number: US-BAYER-200713251BCC

PATIENT
  Age: 76 Year
  Sex: Female
  Weight: 64 kg

DRUGS (9)
  1. ALEVE [Suspect]
     Indication: ARTHRALGIA
     Dosage: TOTAL DAILY DOSE: 220 MG  UNIT DOSE: 220 MG
     Route: 048
     Dates: start: 20071004
  2. REQUIP [Concomitant]
  3. CENTRUM SILVER [Concomitant]
  4. IRON [Concomitant]
  5. VITAMIN B COMPLEX CAP [Concomitant]
  6. TOPAMAX [Concomitant]
  7. MAGNESIUM [Concomitant]
  8. POTASSIUM CHLORIDE [Concomitant]
  9. PREDNISONE TAB [Concomitant]

REACTIONS (3)
  - ERYTHEMA OF EYELID [None]
  - HYPERSENSITIVITY [None]
  - SWELLING FACE [None]
